FAERS Safety Report 8959061 (Version 2)
Quarter: 2013Q1

REPORT INFORMATION
  Report Type: Spontaneous
  Country: US (occurrence: US)
  Receive Date: 20121212
  Receipt Date: 20130228
  Transmission Date: 20140127
  Serious: Yes (Other)
  Sender: FDA-Public Use
  Company Number: US-BAYER-2012-128719

PATIENT
  Age: 21 Year
  Sex: Female

DRUGS (2)
  1. MIRENA [Suspect]
     Indication: CONTRACEPTION
     Dosage: 20 MCG/24HR, CONT
     Route: 015
     Dates: start: 20121029
  2. WELLBUTRIN [Concomitant]
     Indication: DEPRESSION
     Dosage: UNK

REACTIONS (4)
  - Genital haemorrhage [None]
  - Abdominal pain [None]
  - Device breakage [None]
  - Procedural haemorrhage [None]
